FAERS Safety Report 15809884 (Version 2)
Quarter: 2020Q1

REPORT INFORMATION
  Report Type: Spontaneous
  Country: US (occurrence: US)
  Receive Date: 20190111
  Receipt Date: 20200123
  Transmission Date: 20200409
  Serious: No
  Sender: FDA-Public Use
  Company Number: US-ROCHE-2091841

PATIENT
  Age: 73 Year
  Sex: Male
  Weight: 89.44 kg

DRUGS (7)
  1. SIMVASTATIN. [Concomitant]
     Active Substance: SIMVASTATIN
  2. RITUXAN [Suspect]
     Active Substance: RITUXIMAB
     Dosage: FIRST MAINTENANCE DOSE
     Route: 065
     Dates: start: 20180309
  3. ZANTAC [Concomitant]
     Active Substance: RANITIDINE HYDROCHLORIDE
  4. AZOPT [Concomitant]
     Active Substance: BRINZOLAMIDE
  5. RITUXAN [Suspect]
     Active Substance: RITUXIMAB
     Indication: B-CELL LYMPHOMA
     Dosage: ONGOING: UNKNOWN, STANDARD DOSING
     Route: 065
     Dates: start: 201711
  6. RITUXAN [Suspect]
     Active Substance: RITUXIMAB
     Route: 065
     Dates: start: 201809
  7. ATROVENT [Suspect]
     Active Substance: IPRATROPIUM BROMIDE
     Indication: PRODUCTIVE COUGH
     Dosage: INHALER
     Route: 065

REACTIONS (5)
  - Fatigue [Recovering/Resolving]
  - Infection [Recovering/Resolving]
  - Hypersomnia [Recovering/Resolving]
  - Productive cough [Not Recovered/Not Resolved]
  - Nasopharyngitis [Recovering/Resolving]

NARRATIVE: CASE EVENT DATE: 20180310
